FAERS Safety Report 4419573-8 (Version None)
Quarter: 2004Q3

REPORT INFORMATION
  Report Type: 
  Country: None (occurrence: None)
  Receive Date: 20040809
  Receipt Date: 20040217
  Transmission Date: 20050211
  Serious: No
  Sender: FDA-Public Use
  Company Number: US-GLAXOSMITHKLINE-A0498815A

PATIENT
  Age: 18 Year
  Sex: Male

DRUGS (1)
  1. PAXIL [Suspect]
     Indication: DEPRESSION

REACTIONS (14)
  - CONSTIPATION [None]
  - CONTUSION [None]
  - DEPRESSION [None]
  - DIARRHOEA [None]
  - DROOLING [None]
  - EJACULATION DISORDER [None]
  - FLATULENCE [None]
  - HICCUPS [None]
  - HYPERHIDROSIS [None]
  - IRRITABILITY [None]
  - IRRITABLE BOWEL SYNDROME [None]
  - PALPITATIONS [None]
  - SOMNOLENCE [None]
  - VISION BLURRED [None]
